FAERS Safety Report 6461945-4 (Version None)
Quarter: 2009Q4

REPORT INFORMATION
  Report Type: 
  Country: None (occurrence: None)
  Receive Date: 20091130
  Receipt Date: 20091123
  Transmission Date: 20100525
  Serious: Yes (Other)
  Sender: FDA-Public Use
  Company Number: IN-BRISTOL-MYERS SQUIBB COMPANY-14868822

PATIENT
  Age: 30 Year
  Sex: Female

DRUGS (5)
  1. CYCLOPHOSPHAMIDE [Suspect]
     Indication: CHORIOCARCINOMA
  2. ETOPOSIDE [Suspect]
     Indication: CHORIOCARCINOMA
  3. VINCRISTINE [Suspect]
     Indication: CHORIOCARCINOMA
  4. ACTINOMYCIN D [Suspect]
     Indication: CHORIOCARCINOMA
  5. METHOTREXATE [Suspect]
     Indication: CHORIOCARCINOMA

REACTIONS (2)
  - CEREBRAL INFARCTION [None]
  - CEREBRAL VENOUS THROMBOSIS [None]
